FAERS Safety Report 20991813 (Version 2)
Quarter: 2022Q3

REPORT INFORMATION
  Report Type: Spontaneous
  Country: US (occurrence: US)
  Receive Date: 20220622
  Receipt Date: 20220818
  Transmission Date: 20221026
  Serious: Yes (Other)
  Sender: FDA-Public Use
  Company Number: US-MLMSERVICE-20220609-3604409-1

PATIENT
  Sex: Male

DRUGS (5)
  1. METHOTREXATE [Suspect]
     Active Substance: METHOTREXATE
     Indication: Mesenteric panniculitis
  2. TAMOXIFEN [Concomitant]
     Active Substance: TAMOXIFEN
     Indication: Mesenteric panniculitis
  3. AZATHIOPRINE [Concomitant]
     Active Substance: AZATHIOPRINE
     Indication: Mesenteric panniculitis
  4. COLCHICINE [Concomitant]
     Active Substance: COLCHICINE
     Indication: Mesenteric panniculitis
  5. CYCLOPHOSPHAMIDE [Concomitant]
     Active Substance: CYCLOPHOSPHAMIDE
     Indication: Mesenteric panniculitis

REACTIONS (3)
  - Liver disorder [Unknown]
  - Off label use [Unknown]
  - Drug ineffective [Unknown]
